FAERS Safety Report 6764089-7 (Version None)
Quarter: 2010Q2

REPORT INFORMATION
  Report Type: 
  Country: None (occurrence: None)
  Receive Date: 20100610
  Receipt Date: 20090910
  Transmission Date: 20101027
  Serious: Yes (Hospitalization)
  Sender: FDA-Public Use
  Company Number: A0802118A

PATIENT
  Age: 11 Year
  Sex: Male

DRUGS (5)
  1. AXID [Suspect]
     Dosage: 7ML TWICE PER DAY
     Route: 048
  2. ARTANE [Concomitant]
  3. SINEMET [Concomitant]
  4. SINGULAIR [Concomitant]
  5. NEBULIZER [Concomitant]

REACTIONS (1)
  - NEPHROLITHIASIS [None]
